FAERS Safety Report 7015662-2 (Version None)
Quarter: 2010Q3

REPORT INFORMATION
  Report Type: 
  Country: None (occurrence: None)
  Receive Date: 20100927
  Receipt Date: 20100922
  Transmission Date: 20110219
  Serious: Yes (Death)
  Sender: FDA-Public Use
  Company Number: FR-JNJFOC-20100905673

PATIENT
  Age: 25 Year
  Sex: Male

DRUGS (5)
  1. RISPERDAL CONSTA [Suspect]
     Indication: CHILDHOOD PSYCHOSIS
     Route: 030
  2. ATARAX [Suspect]
     Indication: PRODUCT USED FOR UNKNOWN INDICATION
     Route: 065
  3. EQUANIL [Concomitant]
     Route: 065
  4. TRIMEPRAZINE TAB [Concomitant]
     Route: 065
  5. TERCIAN [Concomitant]
     Route: 065

REACTIONS (1)
  - SUDDEN DEATH [None]
